FAERS Safety Report 9013958 (Version 1)
Quarter: 2012Q4

REPORT INFORMATION
  Report Type: Spontaneous
  Country: US (occurrence: None)
  Receive Date: 20121231
  Receipt Date: 20121231
  Transmission Date: 20130627
  Serious: Yes (Death, Other)
  Sender: FDA-Public Use
  Company Number: UTC-027048

PATIENT
  Age: 77 Year
  Sex: Male
  Weight: 58.18 kg

DRUGS (3)
  1. TYVASO [Suspect]
     Indication: PRIMARY PULMONARY HYPERTENSION
     Dates: start: 20110125, end: 2012
  2. ADCIRCA  (TADALAFIL) [Concomitant]
  3. COUMADIN (WARFARIN SODIUM) [Concomitant]

REACTIONS (4)
  - Surgery [None]
  - Device issue [None]
  - Device breakage [None]
  - Device malfunction [None]
